FAERS Safety Report 17699522 (Version 1)
Quarter: 2020Q2

REPORT INFORMATION
  Report Type: Spontaneous
  Country: US (occurrence: US)
  Receive Date: 20200423
  Receipt Date: 20200423
  Transmission Date: 20200714
  Serious: No
  Sender: FDA-Public Use
  Company Number: US-JNJFOC-20200425360

PATIENT
  Sex: Male

DRUGS (2)
  1. SIMPONI ARIA [Suspect]
     Active Substance: GOLIMUMAB
     Indication: ANKYLOSING SPONDYLITIS
     Route: 042
  2. LOSARTAN. [Concomitant]
     Active Substance: LOSARTAN
     Indication: HYPERTENSION
     Route: 065

REACTIONS (7)
  - Chest pain [Recovered/Resolved]
  - Pain [Recovered/Resolved]
  - Tinnitus [Unknown]
  - Inappropriate schedule of product administration [Unknown]
  - Abdominal distension [Recovered/Resolved]
  - Musculoskeletal stiffness [Unknown]
  - Memory impairment [Unknown]
